FAERS Safety Report 9152750 (Version 1)
Quarter: 2013Q1

REPORT INFORMATION
  Report Type: Spontaneous
  Country: US (occurrence: US)
  Receive Date: 20130308
  Receipt Date: 20130308
  Transmission Date: 20140127
  Serious: No
  Sender: FDA-Public Use
  Company Number: US-ASTRAZENECA-2013SE12614

PATIENT
  Age: 62 Year
  Sex: Male
  Weight: 83.9 kg

DRUGS (5)
  1. CRESTOR [Suspect]
     Indication: BLOOD CHOLESTEROL
     Dosage: DAILY
     Route: 048
     Dates: end: 2011
  2. LISINOPRIL [Suspect]
     Route: 048
  3. SINGULAIR [Concomitant]
     Indication: HYPERSENSITIVITY
  4. FLONASE [Concomitant]
     Indication: HYPERSENSITIVITY
  5. ASTELIN [Concomitant]
     Indication: HYPERSENSITIVITY

REACTIONS (5)
  - Muscle atrophy [Not Recovered/Not Resolved]
  - Anaemia [Not Recovered/Not Resolved]
  - Glucose tolerance impaired [Not Recovered/Not Resolved]
  - Muscular weakness [Not Recovered/Not Resolved]
  - Muscle spasms [Not Recovered/Not Resolved]
